FAERS Safety Report 7295167-4 (Version None)
Quarter: 2011Q1

REPORT INFORMATION
  Report Type: 
  Country: None (occurrence: None)
  Receive Date: 20110216
  Receipt Date: 20101130
  Transmission Date: 20110831
  Serious: Yes (Other)
  Sender: FDA-Public Use
  Company Number: A0873655A

PATIENT
  Age: 54 Year
  Sex: Male
  Weight: 77.3 kg

DRUGS (5)
  1. TOPROL-XL [Concomitant]
     Dosage: 100MG PER DAY
  2. ALTACE [Concomitant]
     Dosage: 10MG TWICE PER DAY
     Dates: start: 20100304
  3. VOTRIENT [Suspect]
     Indication: RENAL CELL CARCINOMA
     Dosage: 800MGD PER DAY
     Route: 048
     Dates: start: 20100222
  4. HYDROCHLOROTHIAZIDE [Concomitant]
     Dosage: 25MG PER DAY
  5. CLONIDINE [Concomitant]
     Dates: start: 20100318

REACTIONS (6)
  - ASPARTATE AMINOTRANSFERASE INCREASED [None]
  - ALANINE AMINOTRANSFERASE INCREASED [None]
  - HYPERTENSION [None]
  - HAIR COLOUR CHANGES [None]
  - NAUSEA [None]
  - DIARRHOEA [None]
